FAERS Safety Report 4570192-2 (Version None)
Quarter: 2005Q1

REPORT INFORMATION
  Report Type: 
  Country: None (occurrence: None)
  Receive Date: 20050204
  Receipt Date: 20050126
  Transmission Date: 20050727
  Serious: Yes (Hospitalization)
  Sender: FDA-Public Use
  Company Number: US-BRISTOL-MYERS SQUIBB COMPANY-12838678

PATIENT
  Age: 41 Year
  Sex: Male
  Weight: 71 kg

DRUGS (4)
  1. REYATAZ [Suspect]
     Indication: HIV INFECTION
     Dosage: THERAPY INTERRUPTED, RESTARTED JAN-2005
     Route: 048
  2. VIDEX EC [Suspect]
     Indication: HIV INFECTION
     Dates: end: 20040101
  3. NORVIR [Suspect]
     Indication: HIV INFECTION
     Dates: end: 20040101
  4. VIREAD [Suspect]
     Indication: HIV INFECTION
     Dates: end: 20040101

REACTIONS (5)
  - DEPRESSED LEVEL OF CONSCIOUSNESS [None]
  - HEPATITIS [None]
  - RENAL FAILURE ACUTE [None]
  - RESPIRATORY FAILURE [None]
  - RHABDOMYOLYSIS [None]
